FAERS Safety Report 7453873-2 (Version None)
Quarter: 2011Q2

REPORT INFORMATION
  Report Type: 
  Country: None (occurrence: None)
  Receive Date: 20110502
  Receipt Date: 20110425
  Transmission Date: 20111010
  Serious: Yes (Other)
  Sender: FDA-Public Use
  Company Number: US-BAYER-2011-035238

PATIENT
  Age: 31 Year
  Sex: Male

DRUGS (1)
  1. MAGNEVIST [Suspect]
     Indication: NUCLEAR MAGNETIC RESONANCE IMAGING
     Dosage: ABOUT 17 CC'S
     Dates: start: 20110411, end: 20110411

REACTIONS (4)
  - INJECTION SITE INDURATION [None]
  - INJECTION SITE THROMBOSIS [None]
  - SKIN DISCOLOURATION [None]
  - INJECTION SITE PAIN [None]
